FAERS Safety Report 17201592 (Version 2)
Quarter: 2020Q3

REPORT INFORMATION
  Report Type: Spontaneous
  Country: TR (occurrence: TR)
  Receive Date: 20191226
  Receipt Date: 20200803
  Transmission Date: 20201102
  Serious: Yes (Other)
  Sender: FDA-Public Use
  Company Number: TR-TOLMAR, INC.-19TR000692

PATIENT
  Age: 78 Year
  Sex: Male

DRUGS (1)
  1. ELIGARD [Suspect]
     Active Substance: LEUPROLIDE ACETATE
     Indication: PROSTATE CANCER
     Dosage: 45 MG Q 6 MONTHS
     Route: 065
     Dates: start: 20180524

REACTIONS (6)
  - Product leakage [Unknown]
  - Product preparation error [Unknown]
  - Drug ineffective [Unknown]
  - Underdose [Unknown]
  - Blood testosterone increased [Unknown]
  - Intercepted product administration error [Unknown]

NARRATIVE: CASE EVENT DATE: 20180903
